FAERS Safety Report 7755864-0 (Version None)
Quarter: 2011Q3

REPORT INFORMATION
  Report Type: 
  Country: None (occurrence: None)
  Receive Date: 20110915
  Receipt Date: 20110915
  Transmission Date: 20111222
  Serious: No
  Sender: FDA-Public Use
  Company Number: None

PATIENT
  Sex: Female
  Weight: 73.6 kg

DRUGS (3)
  1. PROMETHAZINE EXPECTORANT W/ CODEINE [Suspect]
     Indication: SINUSITIS
     Dosage: 2 TSP 3 TIMES DAILY MOUTH 9/9(PRTL), 9/10, 9/11, 9/12
     Route: 048
  2. AMOXICILLIN AND CLAVULANATE POTASSIUM [Suspect]
     Indication: SINUSITIS
     Dosage: 1 TABLET 3 TIMES DAILY MOUTH 9/9(PRTL), 9/10, 9/11, 9/12
     Route: 048
  3. AMOXICILLIN AND CLAVULANATE POTASSIUM [Suspect]
     Indication: NASOPHARYNGITIS
     Dosage: 1 TABLET 3 TIMES DAILY MOUTH 9/9(PRTL), 9/10, 9/11, 9/12
     Route: 048

REACTIONS (2)
  - DYSPNOEA [None]
  - PARANASAL SINUS HYPERSECRETION [None]
